FAERS Safety Report 8082310-2 (Version None)
Quarter: 2012Q1

REPORT INFORMATION
  Report Type: 
  Country: None (occurrence: None)
  Receive Date: 20120127
  Receipt Date: 20110216
  Transmission Date: 20120608
  Serious: No
  Sender: FDA-Public Use
  Company Number: US-ABBOTT-11P-163-0705681-00

PATIENT
  Sex: Male

DRUGS (6)
  1. VENTOLIN HFA [Concomitant]
     Indication: ASTHMA
  2. DIAZIDE [Concomitant]
     Indication: HYPERTENSION
  3. GLIMEPIRIDE [Concomitant]
     Indication: HYPOGLYCAEMIA
  4. XOPENEX [Concomitant]
     Indication: ASTHMA
     Dosage: 1.25/3ML PER NEBULIZER
  5. HUMIRA [Suspect]
     Indication: COLITIS ULCERATIVE
     Dosage: DAY ONE
     Route: 058
     Dates: start: 20110215
  6. TRAMADOL HCL [Concomitant]
     Indication: RHEUMATOID ARTHRITIS

REACTIONS (1)
  - INJECTION SITE PAIN [None]
